FAERS Safety Report 9094459 (Version 2)
Quarter: 2013Q3

REPORT INFORMATION
  Report Type: Report from Study
  Country: US (occurrence: US)
  Receive Date: 20130219
  Receipt Date: 20130812
  Transmission Date: 20140515
  Serious: Yes (Hospitalization)
  Sender: FDA-Public Use
  Company Number: US-PFIZER INC-2013059141

PATIENT
  Age: 45 Year
  Sex: Female
  Weight: 79.5 kg

DRUGS (3)
  1. REVATIO [Suspect]
     Dosage: UNK
  2. TYVASO [Suspect]
     Indication: PULMONARY ARTERIAL HYPERTENSION
     Dosage: 12 UG, 4X/DAY (2 BREATHS)
     Route: 055
     Dates: start: 20130129
  3. TRACLEER [Suspect]
     Dosage: UNK

REACTIONS (2)
  - Hypertension [Not Recovered/Not Resolved]
  - Epistaxis [Not Recovered/Not Resolved]
